FAERS Safety Report 17493370 (Version 1)
Quarter: 2020Q1

REPORT INFORMATION
  Report Type: Spontaneous
  Country: US (occurrence: US)
  Receive Date: 20200303
  Receipt Date: 20200303
  Transmission Date: 20200409
  Serious: No
  Sender: FDA-Public Use
  Company Number: US-AMNEAL PHARMACEUTICALS-2019-IPXL-00790

PATIENT
  Age: 51 Year
  Sex: Male
  Weight: 136 kg

DRUGS (2)
  1. RYTARY [Suspect]
     Active Substance: CARBIDOPA\LEVODOPA
     Indication: PARKINSON^S DISEASE
     Dosage: 2 DOSAGE FORM, 4 /DAY
     Route: 048
     Dates: start: 201812, end: 201902
  2. RYTARY [Suspect]
     Active Substance: CARBIDOPA\LEVODOPA
     Dosage: 2 DOSAGE FORM, 5 /DAY
     Route: 048
     Dates: start: 201902

REACTIONS (1)
  - Akinesia [Recovered/Resolved]

NARRATIVE: CASE EVENT DATE: 201901
